FAERS Safety Report 5340811-1 (Version None)
Quarter: 2007Q2

REPORT INFORMATION
  Report Type: 
  Country: None (occurrence: None)
  Receive Date: 20070405
  Receipt Date: 20070126
  Transmission Date: 20071010
  Serious: Yes (Other)
  Sender: FDA-Public Use
  Company Number: US200701005255

PATIENT
  Age: 51 Year
  Sex: Male

DRUGS (5)
  1. CYMBALTA [Suspect]
     Indication: DIABETIC NEUROPATHY
     Dosage: 60 MG, DAILY (1/D)
     Dates: start: 20060501
  2. METFORMIN HCL [Concomitant]
  3. LIPITOR [Concomitant]
  4. AVANDIA [Concomitant]
  5. LOTREL [Concomitant]

REACTIONS (2)
  - PERSONALITY CHANGE [None]
  - WEIGHT DECREASED [None]
